FAERS Safety Report 9049729 (Version 1)
Quarter: 2013Q1

REPORT INFORMATION
  Report Type: Report from Study
  Country: JP (occurrence: JP)
  Receive Date: 20130205
  Receipt Date: 20130205
  Transmission Date: 20140127
  Serious: Yes (Other)
  Sender: FDA-Public Use
  Company Number: JP-VERTEX PHARMACEUTICAL INC.-2012-023563

PATIENT
  Age: 43 Year
  Sex: Male

DRUGS (26)
  1. VX-950 (TELAPREVIR) [Suspect]
     Indication: CHRONIC HEPATITIS C
     Dosage: 1500 MG, QD
     Route: 048
     Dates: start: 20120419, end: 20120509
  2. VX-950 (TELAPREVIR) [Suspect]
     Dosage: 1000 MG, QD
     Route: 048
     Dates: start: 20120510, end: 20120523
  3. VX-950 (TELAPREVIR) [Suspect]
     Dosage: 1500 MG, QD
     Route: 048
     Dates: start: 20120524, end: 20120712
  4. RIBAVIRIN [Suspect]
     Indication: CHRONIC HEPATITIS C
     Dosage: 800 MG, QD
     Route: 048
     Dates: start: 20120419, end: 20120509
  5. RIBAVIRIN [Suspect]
     Dosage: 200 MG, QD
     Route: 048
     Dates: start: 20120510, end: 20120530
  6. RIBAVIRIN [Suspect]
     Dosage: 400 MG, QD
     Route: 048
     Dates: start: 20120531, end: 20120919
  7. RIBAVIRIN [Suspect]
     Dosage: 600 MG, QD
     Route: 048
     Dates: start: 20120920, end: 20121003
  8. PEGINTRON                          /01543001/ [Suspect]
     Indication: CHRONIC HEPATITIS C
     Dosage: 1.25 ?G/KG, QW
     Route: 058
     Dates: start: 20120419, end: 20120426
  9. PEGINTRON                          /01543001/ [Suspect]
     Dosage: 1 ?G/KG, QW
     Route: 058
     Dates: start: 20120502, end: 20120510
  10. PEGINTRON                          /01543001/ [Suspect]
     Dosage: 1.25 ?G/KG, QW
     Route: 058
     Dates: start: 20120517, end: 20120524
  11. PEGINTRON                          /01543001/ [Suspect]
     Dosage: 1 ?G/KG, QW
     Route: 058
     Dates: start: 20120531, end: 20120607
  12. PEGINTRON                          /01543001/ [Suspect]
     Dosage: 1.25 ?G/KG, QW
     Route: 058
     Dates: start: 20120614, end: 20120614
  13. PEGINTRON                          /01543001/ [Suspect]
     Dosage: 1 ?G/KG, QW
     Route: 058
     Dates: start: 20120621, end: 20120712
  14. PEGINTRON                          /01543001/ [Suspect]
     Dosage: 1.25 ?G/KG, QW
     Route: 058
     Dates: start: 20120719, end: 20120719
  15. PEGINTRON                          /01543001/ [Suspect]
     Dosage: 1 ?G/KG, QW
     Route: 058
     Dates: start: 20120726, end: 20120809
  16. PEGINTRON                          /01543001/ [Suspect]
     Dosage: 1.25 ?G/KG
     Route: 058
     Dates: start: 20120816, end: 20120906
  17. PEGINTRON                          /01543001/ [Suspect]
     Dosage: 1 ?G/KG, QW
     Route: 058
     Dates: start: 20120913, end: 20120913
  18. PEGINTRON                          /01543001/ [Suspect]
     Dosage: 1.25 ?G/KG, QW
     Route: 058
     Dates: start: 20120920, end: 20120920
  19. PEGINTRON                          /01543001/ [Suspect]
     Dosage: 1.5 ?G/KG, QW
     Route: 058
     Dates: start: 20120927, end: 20120927
  20. WARFARIN [Concomitant]
     Dosage: 2 MG, QD
     Route: 048
  21. ALDACTONE                          /00006201/ [Concomitant]
     Dosage: 25 MG, QD
     Route: 048
     Dates: end: 20120809
  22. DIGOXIN [Concomitant]
     Dosage: 0.125 MG, QD
     Route: 048
  23. NU-LOTAN [Concomitant]
     Dosage: 50 MG, QD
     Route: 048
  24. ARTIST [Concomitant]
     Dosage: 1.25 MG, QD
     Route: 048
  25. FERRUM                             /00023502/ [Concomitant]
     Dosage: 100 MG, QD
     Route: 048
     Dates: end: 20120626
  26. SELARA [Concomitant]
     Dosage: 25 MG, UNK
     Route: 048
     Dates: start: 20120810

REACTIONS (2)
  - White blood cell count decreased [Recovered/Resolved]
  - Neutrophil count decreased [Recovered/Resolved]
